FAERS Safety Report 13202225 (Version 1)
Quarter: 2017Q1

REPORT INFORMATION
  Report Type: Spontaneous
  Country: US (occurrence: US)
  Receive Date: 20170208
  Receipt Date: 20170208
  Transmission Date: 20170428
  Serious: No
  Sender: FDA-Public Use
  Company Number: US-AMGEN-USASP2016056593

PATIENT
  Age: 46 Year
  Sex: Female

DRUGS (1)
  1. NEULASTA [Suspect]
     Active Substance: PEGFILGRASTIM
     Indication: BREAST CANCER STAGE II
     Dosage: UNK UNK, UNK
     Route: 065
     Dates: start: 201602

REACTIONS (6)
  - Flushing [Unknown]
  - Device issue [Unknown]
  - Nausea [Unknown]
  - Feeling hot [Unknown]
  - Erythema [Unknown]
  - Hyperhidrosis [Unknown]

NARRATIVE: CASE EVENT DATE: 2016
